FAERS Safety Report 8653840 (Version 4)
Quarter: 2014Q2

REPORT INFORMATION
  Report Type: Report from Study
  Country: FR (occurrence: FR)
  Receive Date: 20120709
  Receipt Date: 20140627
  Transmission Date: 20141212
  Serious: Yes (Hospitalization, Other)
  Sender: FDA-Public Use
  Company Number: PHHY2012FR057190

PATIENT
  Age: 3 Year
  Sex: Female
  Weight: 13.5 kg

DRUGS (2)
  1. ILARIS [Suspect]
     Indication: HYPER IGD SYNDROME
     Dosage: 4 MG/KG (TOTAL OF 54 MG) EVERY 6 WEEKS
     Route: 058
     Dates: start: 20120113
  2. ILARIS [Suspect]
     Dosage: UNK

REACTIONS (6)
  - Viral infection [Unknown]
  - Pyrexia [Recovered/Resolved]
  - C-reactive protein increased [Unknown]
  - White blood cell count increased [Unknown]
  - Tooth abscess [Unknown]
  - Hyper IgD syndrome [Unknown]
